FAERS Safety Report 10160098 (Version 1)
Quarter: 2014Q2

REPORT INFORMATION
  Report Type: Spontaneous
  Country: US (occurrence: None)
  Receive Date: 20140506
  Receipt Date: 20140506
  Transmission Date: 20141212
  Serious: Yes (Hospitalization)
  Sender: FDA-Public Use
  Company Number: 2014P1003653

PATIENT
  Age: 74 Year
  Sex: Female

DRUGS (3)
  1. PREDNISONE [Suspect]
     Dates: start: 20120315
  2. MYFORTIC [Suspect]
  3. NULOJIX [Suspect]
     Indication: RENAL TRANSPLANT
     Dates: start: 20120319

REACTIONS (4)
  - Renal failure acute [None]
  - Anaemia [None]
  - Deafness [None]
  - Urinary tract infection [None]
